FAERS Safety Report 9632545 (Version 2)
Quarter: 2013Q4

REPORT INFORMATION
  Report Type: Report from Study
  Country: US (occurrence: US)
  Receive Date: 20131018
  Receipt Date: 20131122
  Transmission Date: 20140711
  Serious: Yes (Death)
  Sender: FDA-Public Use
  Company Number: US-OTSUKA-US-2013-11912

PATIENT
  Age: 57 Year
  Sex: Male
  Weight: 60 kg

DRUGS (7)
  1. BUSULFEX [Suspect]
     Indication: HAEMATOLOGICAL MALIGNANCY
     Dosage: 8800 MCG, MIN/LDAILY DOSE
     Route: 042
     Dates: start: 20070801, end: 20070804
  2. BUSULFEX [Suspect]
     Indication: MYELOID LEUKAEMIA
  3. FLUDARABINE [Suspect]
     Indication: HAEMATOLOGICAL MALIGNANCY
     Dosage: 25 MCG/M2, DAILY DOSE
     Route: 042
     Dates: start: 20070731, end: 20070804
  4. FLUDARABINE [Suspect]
     Indication: MYELOID LEUKAEMIA
  5. ALEMTUZUMAB [Suspect]
     Indication: HAEMATOLOGICAL MALIGNANCY
     Dosage: 20 MG MILLIGRAM(S), DAILY DOSE
     Route: 042
  6. ALEMTUZUMAB [Suspect]
     Indication: MYELOID LEUKAEMIA
  7. CLONAZEPAM [Suspect]
     Dosage: UNK

REACTIONS (2)
  - Venoocclusive disease [Fatal]
  - Myeloid leukaemia [Fatal]
